FAERS Safety Report 9846587 (Version 2)
Quarter: 2014Q1

REPORT INFORMATION
  Report Type: Spontaneous
  Country: US (occurrence: US)
  Receive Date: 20140127
  Receipt Date: 20140327
  Transmission Date: 20141002
  Serious: Yes (Death, Hospitalization)
  Sender: FDA-Public Use
  Company Number: US-B.I. PHARMACEUTICALS,INC./RIDGEFIELD-2014-BI-03444BP

PATIENT
  Age: 78 Year
  Sex: Male
  Weight: 90.72 kg

DRUGS (5)
  1. PRADAXA [Suspect]
     Indication: ATRIAL FIBRILLATION
     Route: 048
     Dates: start: 20110314, end: 20120123
  2. DILTIA [Concomitant]
     Route: 065
     Dates: start: 1998
  3. BENICAR [Concomitant]
     Route: 065
     Dates: start: 1998
  4. SIMVASTATIN [Concomitant]
     Route: 065
     Dates: start: 2007
  5. SEROQUEL [Concomitant]
     Route: 065
     Dates: start: 2010

REACTIONS (1)
  - Cerebral haemorrhage [Fatal]
